FAERS Safety Report 4361810-2 (Version None)
Quarter: 2004Q2

REPORT INFORMATION
  Report Type: 
  Country: None (occurrence: None)
  Receive Date: 20040517
  Receipt Date: 20040504
  Transmission Date: 20050107
  Serious: Yes (Death, Hospitalization, Other)
  Sender: FDA-Public Use
  Company Number: 163-20785-04050155

PATIENT
  Age: 76 Year
  Sex: Female

DRUGS (1)
  1. THALOMID [Suspect]
     Indication: OVARIAN CANCER
     Dosage: 200 MG, QHS, ORAL
     Route: 048
     Dates: start: 20040412, end: 20040417

REACTIONS (6)
  - COLONIC PSEUDO-OBSTRUCTION [None]
  - CONSTIPATION [None]
  - LARGE INTESTINE PERFORATION [None]
  - PERITONEAL INFECTION [None]
  - RESPIRATORY FAILURE [None]
  - SEPSIS [None]
